FAERS Safety Report 8835177 (Version 6)
Quarter: 2013Q3

REPORT INFORMATION
  Report Type: Spontaneous
  Country: US (occurrence: US)
  Receive Date: 20121011
  Receipt Date: 20130802
  Transmission Date: 20140515
  Serious: Yes (Hospitalization, Disabling, Other)
  Sender: FDA-Public Use
  Company Number: US-009507513-1210USA003128

PATIENT
  Sex: Female

DRUGS (6)
  1. FOSAMAX [Suspect]
     Indication: OSTEOPOROSIS
     Dosage: 70 MG,QW
     Route: 048
     Dates: start: 200205, end: 200606
  2. FOSAMAX PLUS D [Suspect]
     Indication: OSTEOPOROSIS
     Dosage: 70MG/2800, QW
     Route: 048
     Dates: start: 200606, end: 200807
  3. ACTONEL [Suspect]
     Indication: OSTEOPOROSIS
     Dosage: 150 MG,  QM
     Dates: start: 200807, end: 201108
  4. NAPROXEN [Concomitant]
     Indication: ARTHRITIS
     Dosage: 500 MG, UNK
     Route: 048
     Dates: start: 1990
  5. CALTRATE + D [Concomitant]
     Dosage: 400 IU, QD
     Dates: start: 2002
  6. HORMONES (UNSPECIFIED) [Concomitant]
     Indication: POSTMENOPAUSE

REACTIONS (18)
  - Femur fracture [Unknown]
  - Open reduction of fracture [Unknown]
  - Fall [Unknown]
  - Osteoporosis [Unknown]
  - Cardiac disorder [Unknown]
  - Chest pain [Unknown]
  - Dyspnoea [Unknown]
  - Hyperlipidaemia [Not Recovered/Not Resolved]
  - Hypertension [Not Recovered/Not Resolved]
  - Glaucoma [Unknown]
  - Osteoarthritis [Unknown]
  - Postoperative fever [Recovered/Resolved]
  - Atelectasis [Recovered/Resolved]
  - Anaemia postoperative [Unknown]
  - Hysterectomy [Unknown]
  - Osteopenia [Not Recovered/Not Resolved]
  - Pruritus [Unknown]
  - Gastrooesophageal reflux disease [Not Recovered/Not Resolved]
